FAERS Safety Report 11503654 (Version 1)
Quarter: 2015Q3

REPORT INFORMATION
  Report Type: Spontaneous
  Country: US (occurrence: US)
  Receive Date: 20150914
  Receipt Date: 20150914
  Transmission Date: 20151125
  Serious: No
  Sender: FDA-Public Use
  Company Number: US-ASTELLAS-2015US027114

PATIENT
  Sex: Male

DRUGS (1)
  1. XTANDI [Suspect]
     Active Substance: ENZALUTAMIDE
     Indication: PROSTATE CANCER
     Route: 065

REACTIONS (8)
  - Asthenia [Unknown]
  - Underdose [Unknown]
  - Erythema [Unknown]
  - Skin erosion [Unknown]
  - Peripheral swelling [Unknown]
  - Hot flush [Unknown]
  - Incontinence [Unknown]
  - Oedema peripheral [Unknown]
